FAERS Safety Report 6509095-2 (Version None)
Quarter: 2009Q4

REPORT INFORMATION
  Report Type: 
  Country: None (occurrence: None)
  Receive Date: 20091221
  Receipt Date: 20091202
  Transmission Date: 20100525
  Serious: Yes (Other)
  Sender: FDA-Public Use
  Company Number: DE-GENENTECH-292555

PATIENT
  Sex: Female

DRUGS (1)
  1. XOLAIR [Suspect]
     Indication: URTICARIA
     Dosage: 150 UNK, UNKNOWN
     Route: 048
     Dates: start: 20080301, end: 20090801

REACTIONS (1)
  - MULTIPLE SCLEROSIS [None]
